APPROVED DRUG PRODUCT: CODIMAL-L.A. 12
Active Ingredient: CHLORPHENIRAMINE MALEATE; PSEUDOEPHEDRINE HYDROCHLORIDE
Strength: 12MG;120MG
Dosage Form/Route: CAPSULE, EXTENDED RELEASE;ORAL
Application: N018935 | Product #001
Applicant: SCHWARZ PHARMA INC
Approved: Apr 15, 1985 | RLD: No | RS: No | Type: DISCN